FAERS Safety Report 15084834 (Version 2)
Quarter: 2018Q3

REPORT INFORMATION
  Report Type: Spontaneous
  Country: US (occurrence: US)
  Receive Date: 20180628
  Receipt Date: 20180822
  Transmission Date: 20181010
  Serious: Yes (Other)
  Sender: FDA-Public Use
  Company Number: US-NOVOPROD-607411

PATIENT
  Age: 93 Year
  Sex: Female
  Weight: 48.53 kg

DRUGS (6)
  1. ASPIRIN                            /00002701/ [Concomitant]
     Active Substance: ASPIRIN
     Indication: PRODUCT USED FOR UNKNOWN INDICATION
  2. TRESIBA [Suspect]
     Active Substance: INSULIN DEGLUDEC
     Indication: TYPE 2 DIABETES MELLITUS
     Dosage: 25 U, QD AT NIGHTTIME
     Route: 058
     Dates: start: 201706, end: 2018
  3. SIMVASTATIN. [Concomitant]
     Active Substance: SIMVASTATIN
     Indication: PRODUCT USED FOR UNKNOWN INDICATION
  4. LISINOPRIL. [Concomitant]
     Active Substance: LISINOPRIL
     Indication: PRODUCT USED FOR UNKNOWN INDICATION
  5. GABAPENTIN. [Concomitant]
     Active Substance: GABAPENTIN
     Indication: PRODUCT USED FOR UNKNOWN INDICATION
  6. TRESIBA [Suspect]
     Active Substance: INSULIN DEGLUDEC
     Dosage: 10 U, QD AT LUNCHTIME
     Route: 058
     Dates: start: 2018

REACTIONS (3)
  - Blood glucose fluctuation [Recovering/Resolving]
  - Glycosylated haemoglobin increased [Not Recovered/Not Resolved]
  - Fall [Recovering/Resolving]

NARRATIVE: CASE EVENT DATE: 201706
